FAERS Safety Report 4768788-8 (Version None)
Quarter: 2005Q3

REPORT INFORMATION
  Report Type: 
  Country: None (occurrence: None)
  Receive Date: 20050914
  Receipt Date: 20050815
  Transmission Date: 20060218
  Serious: Yes (Life-Threatening, Hospitalization)
  Sender: FDA-Public Use
  Company Number: US-BRISTOL-MYERS SQUIBB COMPANY-13078217

PATIENT
  Age: 41 Year
  Sex: Female

DRUGS (5)
  1. ABILIFY [Suspect]
     Indication: HALLUCINATION, AUDITORY
     Dosage: DOSAGE: INITAITED AT 5 MG AND THEN TITRATED UP TO 30 MG
     Route: 048
     Dates: start: 20050411, end: 20050812
  2. ABILIFY [Suspect]
     Indication: AGITATION
     Dosage: DOSAGE: INITAITED AT 5 MG AND THEN TITRATED UP TO 30 MG
     Route: 048
     Dates: start: 20050411, end: 20050812
  3. ABILIFY [Suspect]
     Indication: DELUSION
     Dosage: DOSAGE: INITAITED AT 5 MG AND THEN TITRATED UP TO 30 MG
     Route: 048
     Dates: start: 20050411, end: 20050812
  4. NAVANE [Concomitant]
  5. LITHIUM [Concomitant]

REACTIONS (2)
  - INSOMNIA [None]
  - SELF INJURIOUS BEHAVIOUR [None]
